FAERS Safety Report 25311702 (Version 1)
Quarter: 2025Q2

REPORT INFORMATION
  Report Type: Spontaneous
  Country: US (occurrence: US)
  Receive Date: 20250514
  Receipt Date: 20250514
  Transmission Date: 20250716
  Serious: No
  Sender: GRIFOLS
  Company Number: US-IGSA-BIG0035006

PATIENT
  Age: 66 Year
  Sex: Female
  Weight: 81 kg

DRUGS (1)
  1. XEMBIFY [Suspect]
     Active Substance: HUMAN IMMUNOGLOBULIN G
     Indication: Myasthenia gravis
     Dosage: 9 GRAM, Q.WK.
     Route: 042
     Dates: start: 20240920

REACTIONS (4)
  - Infusion site erythema [Recovering/Resolving]
  - Infusion site swelling [Recovering/Resolving]
  - Infusion site urticaria [Recovering/Resolving]
  - Infusion site pain [Recovering/Resolving]

NARRATIVE: CASE EVENT DATE: 20250424
